FAERS Safety Report 9698905 (Version 2)
Quarter: 2020Q3

REPORT INFORMATION
  Report Type: Report from Study
  Country: MX (occurrence: MX)
  Receive Date: 20131120
  Receipt Date: 20131120
  Transmission Date: 20201104
  Serious: Yes (Hospitalization)
  Sender: FDA-Public Use
  Company Number: MX-JNJFOC-20131013905

PATIENT
  Age: 65 Year
  Sex: Female
  Weight: 55 kg

DRUGS (1)
  1. IBRUTINIB [Suspect]
     Active Substance: IBRUTINIB
     Indication: MANTLE CELL LYMPHOMA
     Route: 048
     Dates: start: 20130806

REACTIONS (2)
  - Epistaxis [Recovered/Resolved with Sequelae]
  - Nasal septum deviation [None]

NARRATIVE: CASE EVENT DATE: 20131016
